FAERS Safety Report 4311469-5 (Version None)
Quarter: 2004Q1

REPORT INFORMATION
  Report Type: 
  Country: None (occurrence: None)
  Receive Date: 20040304
  Receipt Date: 20040225
  Transmission Date: 20041129
  Serious: Yes (Disabling)
  Sender: FDA-Public Use
  Company Number: PHBS2004ES02636

PATIENT
  Age: 46 Year
  Sex: Female

DRUGS (4)
  1. TRILEPTAL [Suspect]
     Indication: HYPOMANIA
     Dosage: 600 MG, UNK
     Dates: start: 20040109
  2. QUETIAPINE [Concomitant]
  3. CLONAZEPAM [Concomitant]
  4. VENLAFAXINE HCL [Concomitant]

REACTIONS (3)
  - APATHY [None]
  - DEPRESSION [None]
  - SEDATION [None]
